FAERS Safety Report 9413361 (Version 1)
Quarter: 2013Q3

REPORT INFORMATION
  Report Type: Spontaneous
  Country: FR (occurrence: None)
  Receive Date: 20130717
  Receipt Date: 20130717
  Transmission Date: 20140515
  Serious: Yes (Death, Hospitalization, Other)
  Sender: FDA-Public Use
  Company Number: AUR-APL-2013-05938

PATIENT
  Age: 91 Year
  Sex: Female

DRUGS (8)
  1. METFORMIN (METFORMIN) [Suspect]
     Dosage: 1700 MG (850 MG, 2 IN 1 D), ORAL
     Route: 048
     Dates: end: 20130618
  2. EFFEXOR (VENLAFAXINE HYDROCHLORIDE) UNKNOWN [Suspect]
     Dosage: 37.5 MG (37.5 MG, 1 IN 1 D), ORAL
     Route: 048
     Dates: end: 20130618
  3. DIFFU K [Suspect]
     Route: 048
     Dates: end: 20130618
  4. HYZAAR [Suspect]
     Dosage: 1 DOSAGE FORMS (1 DOSAGE FORMS, 1 IN 1 D), ORAL
     Route: 048
     Dates: end: 20130618
  5. LASILIX (FUROSEMIDE) [Suspect]
     Dosage: 40 MG (40 MG, 1 IN 1 D), ORAL
     Route: 048
     Dates: end: 20130618
  6. INEXIUM [Suspect]
     Dosage: 40 MG (40 MG, 1 IN 1 D), ORAL
     Route: 048
     Dates: end: 20130618
  7. PARACETAMOL (PARACETAMOL) [Suspect]
     Route: 048
     Dates: end: 20130618
  8. LANSOYL [Suspect]
     Route: 048
     Dates: end: 20130618

REACTIONS (9)
  - Constipation [None]
  - Dehydration [None]
  - Renal failure acute [None]
  - Lactic acidosis [None]
  - Hyperkalaemia [None]
  - Muscle spasms [None]
  - Somnolence [None]
  - Tachycardia [None]
  - Hypotension [None]
